FAERS Safety Report 4366838-4 (Version None)
Quarter: 2004Q2

REPORT INFORMATION
  Report Type: 
  Country: None (occurrence: None)
  Receive Date: 20040528
  Receipt Date: 20031013
  Transmission Date: 20050107
  Serious: No
  Sender: FDA-Public Use
  Company Number: US-GLAXOSMITHKLINE-A0430007A

PATIENT
  Age: 84 Year
  Sex: Male

DRUGS (1)
  1. BACTROBAN [Suspect]
     Indication: CARCINOMA
     Dosage: 1APP TWICE PER DAY
     Route: 061
     Dates: start: 20031006, end: 20031012

REACTIONS (2)
  - APPLICATION SITE PAIN [None]
  - CONDITION AGGRAVATED [None]
